FAERS Safety Report 6433950-5 (Version None)
Quarter: 2009Q4

REPORT INFORMATION
  Report Type: 
  Country: None (occurrence: None)
  Receive Date: 20091110
  Receipt Date: 20091030
  Transmission Date: 20100525
  Serious: Yes (Death, Hospitalization)
  Sender: FDA-Public Use
  Company Number: DE-AMGEN-US373225

PATIENT
  Sex: Male
  Weight: 82 kg

DRUGS (9)
  1. ENBREL [Suspect]
     Indication: RHEUMATOID ARTHRITIS
     Route: 058
     Dates: start: 20081010, end: 20081226
  2. PREDNISOLONE [Suspect]
     Route: 048
     Dates: start: 20040401
  3. LANTAREL [Suspect]
     Route: 048
     Dates: start: 20081117, end: 20081201
  4. ALENDRONIC ACID [Concomitant]
     Route: 065
  5. ISOZID-COMPOSITUM [Concomitant]
     Route: 048
     Dates: start: 20080901
  6. DIGITOXIN INJ [Concomitant]
     Route: 065
  7. FALITHROM [Concomitant]
     Route: 065
  8. METOHEXAL [Concomitant]
     Route: 065
  9. CALCIUM [Concomitant]
     Route: 065

REACTIONS (6)
  - DEPRESSED LEVEL OF CONSCIOUSNESS [None]
  - GENERAL PHYSICAL HEALTH DETERIORATION [None]
  - MENINGITIS [None]
  - SEPSIS [None]
  - STAPHYLOCOCCAL SEPSIS [None]
  - TIBIA FRACTURE [None]
